FAERS Safety Report 16320460 (Version 4)
Quarter: 2020Q3

REPORT INFORMATION
  Report Type: Spontaneous
  Country: US (occurrence: US)
  Receive Date: 20190516
  Receipt Date: 20200814
  Transmission Date: 20201102
  Serious: No
  Sender: FDA-Public Use
  Company Number: US-PFIZER INC-2019204872

PATIENT
  Age: 4 Year
  Sex: Male
  Weight: 15.88 kg

DRUGS (2)
  1. GENOTROPIN [Suspect]
     Active Substance: SOMATROPIN
     Indication: BLOOD GROWTH HORMONE ABNORMAL
     Dosage: 0.65 MG, ONCE DAILY
  2. GENOTROPIN [Suspect]
     Active Substance: SOMATROPIN
     Dosage: 0.70 MG, DAILY

REACTIONS (2)
  - Device dispensing error [Unknown]
  - Anger [Not Recovered/Not Resolved]
